FAERS Safety Report 6140847-7 (Version None)
Quarter: 2009Q2

REPORT INFORMATION
  Report Type: 
  Country: None (occurrence: None)
  Receive Date: 20090402
  Receipt Date: 20090213
  Transmission Date: 20091009
  Serious: No
  Sender: FDA-Public Use
  Company Number: US-KINGPHARMUSA00001-K200900151

PATIENT
  Age: 79 Year
  Sex: Female

DRUGS (4)
  1. SKELAXIN [Suspect]
     Indication: MUSCLE SPASMS
     Dosage: 400 MG, SINGLE
     Route: 048
     Dates: start: 20090201, end: 20090201
  2. SKELAXIN [Suspect]
     Indication: BACK PAIN
  3. VITAMINS                           /90003601/ [Concomitant]
  4. HERBAL SUPPLEMENTS [Concomitant]

REACTIONS (5)
  - DIZZINESS [None]
  - FEELING ABNORMAL [None]
  - HEARING IMPAIRED [None]
  - MALAISE [None]
  - NAUSEA [None]
